APPROVED DRUG PRODUCT: MOXIFLOXACIN HYDROCHLORIDE
Active Ingredient: MOXIFLOXACIN HYDROCHLORIDE
Strength: EQ 400MG BASE
Dosage Form/Route: TABLET;ORAL
Application: A200160 | Product #001 | TE Code: AB
Applicant: TORRENT PHARMACEUTICALS LTD
Approved: Apr 3, 2014 | RLD: No | RS: No | Type: RX